FAERS Safety Report 14992936 (Version 2)
Quarter: 2018Q3

REPORT INFORMATION
  Report Type: Spontaneous
  Country: US (occurrence: US)
  Receive Date: 20180610
  Receipt Date: 20180709
  Transmission Date: 20181010
  Serious: No
  Sender: FDA-Public Use
  Company Number: US-HORIZON-PEN-0397-2018

PATIENT
  Age: 80 Year
  Sex: Female

DRUGS (2)
  1. LEVOTHYROXINE. [Concomitant]
     Active Substance: LEVOTHYROXINE
  2. PENNSAID [Suspect]
     Active Substance: DICLOFENAC SODIUM
     Indication: FEMUR FRACTURE
     Dosage: 2 PUMPS BID
     Dates: start: 201801, end: 201801

REACTIONS (4)
  - Application site erythema [Unknown]
  - Off label use [Unknown]
  - Application site swelling [Unknown]
  - Application site pain [Unknown]

NARRATIVE: CASE EVENT DATE: 201801
